FAERS Safety Report 16635039 (Version 5)
Quarter: 2019Q4

REPORT INFORMATION
  Report Type: Report from Study
  Country: BE (occurrence: BE)
  Receive Date: 20190726
  Receipt Date: 20191114
  Transmission Date: 20200122
  Serious: Yes (Hospitalization)
  Sender: FDA-Public Use
  Company Number: BE-BIOGEN-2019BI00763426

PATIENT
  Age: 14 Year
  Sex: Female
  Weight: 59 kg

DRUGS (4)
  1. BG00012 [Suspect]
     Active Substance: DIMETHYL FUMARATE
     Route: 048
     Dates: start: 20190731
  2. BG00012 [Suspect]
     Active Substance: DIMETHYL FUMARATE
     Indication: RELAPSING-REMITTING MULTIPLE SCLEROSIS
     Route: 048
     Dates: start: 20180216, end: 20190713
  3. NEUROFEN [Concomitant]
     Active Substance: IBUPROFEN
     Indication: PYREXIA
     Route: 048
     Dates: start: 20190712, end: 20190712
  4. NEUROFEN [Concomitant]
     Active Substance: IBUPROFEN
     Route: 048
     Dates: start: 20190713, end: 20190713

REACTIONS (2)
  - Lymphopenia [Recovered/Resolved]
  - Tonsillitis [Recovered/Resolved]

NARRATIVE: CASE EVENT DATE: 20190713
